FAERS Safety Report 5571859-X (Version None)
Quarter: 2007Q4

REPORT INFORMATION
  Report Type: 
  Country: None (occurrence: None)
  Receive Date: 20071221
  Receipt Date: 20071213
  Transmission Date: 20080405
  Serious: Yes (Hospitalization)
  Sender: FDA-Public Use
  Company Number: IT-AMGEN-UK257062

PATIENT
  Age: 36 Year
  Sex: Male

DRUGS (8)
  1. NEUPOGEN [Suspect]
     Indication: NEUTROPENIA
     Route: 058
  2. CLOZAPINE [Concomitant]
  3. LITHIUM CARBONATE [Concomitant]
  4. CITALOPRAM [Concomitant]
  5. CLOMIPRAMINE HCL [Concomitant]
  6. LORAZEPAM [Concomitant]
  7. CIPROFLOXACIN [Concomitant]
  8. CEFOTAXIME [Concomitant]

REACTIONS (18)
  - ANAEMIA [None]
  - BACTERIAL TOXAEMIA [None]
  - BLOOD CREATININE INCREASED [None]
  - CHILLS [None]
  - HEPATIC ENZYME ABNORMAL [None]
  - HYPERPYREXIA [None]
  - HYPOKALAEMIA [None]
  - INFECTION [None]
  - INFUSION SITE REACTION [None]
  - LEUKOCYTOSIS [None]
  - LEUKOPENIA [None]
  - MARROW HYPERPLASIA [None]
  - MUCOSAL INFLAMMATION [None]
  - NEUTROPENIA [None]
  - PHARYNGOLARYNGEAL PAIN [None]
  - PRURITUS [None]
  - RASH MACULO-PAPULAR [None]
  - RENAL DISORDER [None]
